FAERS Safety Report 6038197-2 (Version None)
Quarter: 2009Q1

REPORT INFORMATION
  Report Type: 
  Country: None (occurrence: None)
  Receive Date: 20090115
  Receipt Date: 20090106
  Transmission Date: 20090719
  Serious: Yes (Other)
  Sender: FDA-Public Use
  Company Number: BE-BAYER-200833076GPV

PATIENT
  Sex: Male

DRUGS (2)
  1. MABCAMPATH [Suspect]
     Indication: CHRONIC LYMPHOCYTIC LEUKAEMIA
     Route: 065
  2. SINTROM [Concomitant]

REACTIONS (5)
  - ABDOMINAL PAIN UPPER [None]
  - LYMPHOMA [None]
  - METASTASES TO LIVER [None]
  - NEUTROPENIA [None]
  - PANCYTOPENIA [None]
